FAERS Safety Report 4611898-6 (Version None)
Quarter: 2005Q2

REPORT INFORMATION
  Report Type: 
  Country: None (occurrence: None)
  Receive Date: 20050308
  Receipt Date: 20041216
  Transmission Date: 20051028
  Serious: Yes (Other)
  Sender: FDA-Public Use
  Company Number: 2004UW25644

PATIENT
  Age: 55 Year
  Sex: Male
  Weight: 95.254 kg

DRUGS (1)
  1. CRESTOR [Suspect]
     Indication: HYPERCHOLESTEROLAEMIA
     Dosage: 10 MG PO
     Route: 048
     Dates: start: 20041001, end: 20041212

REACTIONS (3)
  - ANAL DISCOMFORT [None]
  - PRURITUS ANI [None]
  - STOMACH DISCOMFORT [None]
